FAERS Safety Report 17835679 (Version 1)
Quarter: 2020Q2

REPORT INFORMATION
  Report Type: Spontaneous
  Country: ES (occurrence: ES)
  Receive Date: 20200528
  Receipt Date: 20200528
  Transmission Date: 20200714
  Serious: Yes (Death)
  Sender: FDA-Public Use
  Company Number: ES-PFIZER INC-2020208777

PATIENT
  Age: 56 Year
  Sex: Male

DRUGS (3)
  1. IRINOTECAN HCL [Suspect]
     Active Substance: IRINOTECAN HYDROCHLORIDE
     Indication: ASTROCYTOMA
     Dosage: 125 MG/M2, CYCLIC (EVERY 2 WEEKS)
     Route: 065
     Dates: start: 20180829, end: 201909
  2. TEMOZOLOMIDE. [Concomitant]
     Active Substance: TEMOZOLOMIDE
     Indication: CHEMOTHERAPY
     Dosage: UNK
  3. AVASTIN [Suspect]
     Active Substance: BEVACIZUMAB
     Indication: ASTROCYTOMA
     Dosage: 10 MG/KG, CYCLIC (EVERY 2 WEEKS)
     Route: 065
     Dates: start: 20180829, end: 201909

REACTIONS (6)
  - Asthenia [Recovered/Resolved]
  - Off label use [Unknown]
  - Product use in unapproved indication [Unknown]
  - Depression [Unknown]
  - Death [Fatal]
  - Nausea [Unknown]
